FAERS Safety Report 20205078 (Version 2)
Quarter: 2022Q1

REPORT INFORMATION
  Report Type: Spontaneous
  Country: NL (occurrence: NL)
  Receive Date: 20211220
  Receipt Date: 20220204
  Transmission Date: 20220423
  Serious: Yes (Death, Life-Threatening, Hospitalization)
  Sender: FDA-Public Use
  Company Number: NL-CELGENE-NLD-20211200830

PATIENT
  Age: 59 Year
  Sex: Female

DRUGS (75)
  1. DEXAMETHASONE [Suspect]
     Active Substance: DEXAMETHASONE
     Indication: Plasma cell myeloma
     Dosage: 40 MILLIGRAM
     Route: 065
     Dates: start: 20211122, end: 20211122
  2. ISATUXIMAB [Suspect]
     Active Substance: ISATUXIMAB
     Indication: Plasma cell myeloma
     Dosage: 686 MILLIGRAM
     Route: 065
     Dates: start: 20211122, end: 20211122
  3. LENALIDOMIDE [Suspect]
     Active Substance: LENALIDOMIDE
     Indication: Plasma cell myeloma
     Dosage: 25 MILLIGRAM
     Route: 048
     Dates: start: 20211122, end: 20211126
  4. CARFILZOMIB [Suspect]
     Active Substance: CARFILZOMIB
     Indication: Plasma cell myeloma
     Dosage: 99 MILLIGRAM
     Route: 065
     Dates: start: 20211122, end: 20211122
  5. RASBURICASE [Concomitant]
     Active Substance: RASBURICASE
     Indication: Prophylaxis
     Dates: start: 20210210, end: 20210210
  6. RASBURICASE [Concomitant]
     Active Substance: RASBURICASE
     Dates: start: 20210217, end: 20210217
  7. CLEMASTINE [Concomitant]
     Active Substance: CLEMASTINE
     Indication: Prophylaxis
     Dates: start: 20210303, end: 20210303
  8. CLEMASTINE [Concomitant]
     Active Substance: CLEMASTINE
     Dates: start: 20210913
  9. CLEMASTINE [Concomitant]
     Active Substance: CLEMASTINE
     Dates: start: 20210217, end: 20210217
  10. CLEMASTINE [Concomitant]
     Active Substance: CLEMASTINE
     Dates: start: 20210310, end: 20210310
  11. CLEMASTINE [Concomitant]
     Active Substance: CLEMASTINE
     Dates: start: 20210324, end: 20210324
  12. CLEMASTINE [Concomitant]
     Active Substance: CLEMASTINE
     Dates: start: 20210407, end: 20210519
  13. CLEMASTINE [Concomitant]
     Active Substance: CLEMASTINE
     Dates: start: 20210210, end: 20210210
  14. CLEMASTINE [Concomitant]
     Active Substance: CLEMASTINE
     Dates: start: 20210224, end: 20210224
  15. CIPROFLOXACIN [Concomitant]
     Active Substance: CIPROFLOXACIN
     Indication: Prophylaxis
     Route: 041
     Dates: start: 20210731, end: 20210811
  16. CIPROFLOXACIN [Concomitant]
     Active Substance: CIPROFLOXACIN
     Route: 041
     Dates: start: 20210811, end: 20210813
  17. SODIUM CHLORIDE [Concomitant]
     Active Substance: SODIUM CHLORIDE
     Indication: Prophylaxis
     Route: 041
     Dates: start: 20210726, end: 20210812
  18. SODIUM CHLORIDE [Concomitant]
     Active Substance: SODIUM CHLORIDE
     Route: 041
     Dates: start: 20210723, end: 20210811
  19. SODIUM CHLORIDE [Concomitant]
     Active Substance: SODIUM CHLORIDE
     Dosage: 100 ML / HOUR
     Route: 041
     Dates: start: 20210614, end: 20210615
  20. SODIUM CHLORIDE [Concomitant]
     Active Substance: SODIUM CHLORIDE
     Dosage: 100 ML / HOUR
     Route: 041
     Dates: start: 20210803, end: 20210813
  21. ACYCLOVIR [Concomitant]
     Active Substance: ACYCLOVIR
     Indication: Prophylaxis
     Route: 041
     Dates: start: 20210731, end: 20210810
  22. PHYTONADIONE [Concomitant]
     Active Substance: PHYTONADIONE
     Indication: Product used for unknown indication
     Route: 041
     Dates: start: 20210802, end: 20210810
  23. ACETAMINOPHEN [Concomitant]
     Active Substance: ACETAMINOPHEN
     Indication: Product used for unknown indication
     Dates: start: 20210324, end: 20210324
  24. ACETAMINOPHEN [Concomitant]
     Active Substance: ACETAMINOPHEN
     Route: 065
     Dates: start: 20210210, end: 20210210
  25. ACETAMINOPHEN [Concomitant]
     Active Substance: ACETAMINOPHEN
     Dates: start: 20210913
  26. ACETAMINOPHEN [Concomitant]
     Active Substance: ACETAMINOPHEN
     Dates: start: 20210303, end: 20210303
  27. ACETAMINOPHEN [Concomitant]
     Active Substance: ACETAMINOPHEN
     Route: 065
     Dates: start: 20210407, end: 20210519
  28. ACETAMINOPHEN [Concomitant]
     Active Substance: ACETAMINOPHEN
     Route: 065
     Dates: start: 20210217, end: 20210217
  29. ACETAMINOPHEN [Concomitant]
     Active Substance: ACETAMINOPHEN
     Dates: start: 20210310, end: 20210310
  30. ACETAMINOPHEN [Concomitant]
     Active Substance: ACETAMINOPHEN
     Dates: start: 20210224, end: 20210224
  31. ZOPICLONE [Concomitant]
     Active Substance: ZOPICLONE
     Indication: Prophylaxis
     Dates: start: 20210210, end: 20210602
  32. LORAZEPAM [Concomitant]
     Active Substance: LORAZEPAM
     Indication: Prophylaxis
     Route: 041
     Dates: start: 20210726, end: 20210811
  33. MACROGOL LAX [Concomitant]
     Indication: Prophylaxis
     Route: 041
     Dates: start: 20210806, end: 20210811
  34. METRONIDAZOLE [Concomitant]
     Active Substance: METRONIDAZOLE
     Indication: Product used for unknown indication
     Route: 041
     Dates: start: 20211112
  35. VALACYCLOVIR HYDROCHLORIDE [Concomitant]
     Active Substance: VALACYCLOVIR HYDROCHLORIDE
     Indication: Prophylaxis
     Dates: start: 20210209, end: 20210621
  36. VALACYCLOVIR HYDROCHLORIDE [Concomitant]
     Active Substance: VALACYCLOVIR HYDROCHLORIDE
     Dates: start: 20210810
  37. VALACYCLOVIR HYDROCHLORIDE [Concomitant]
     Active Substance: VALACYCLOVIR HYDROCHLORIDE
     Dates: start: 20210621, end: 20210731
  38. PLATELETS [Concomitant]
     Active Substance: HUMAN PLATELET, ALLOGENIC
     Indication: Thrombocytopenia
     Route: 041
     Dates: start: 20210804, end: 20210804
  39. PLATELETS [Concomitant]
     Active Substance: HUMAN PLATELET, ALLOGENIC
     Dates: start: 20211215, end: 20211215
  40. PLATELETS [Concomitant]
     Active Substance: HUMAN PLATELET, ALLOGENIC
     Dates: start: 20211224, end: 20211224
  41. COVID-19 VACCINE [Concomitant]
     Indication: Prophylaxis
     Dates: start: 20210328, end: 20210328
  42. COVID-19 VACCINE [Concomitant]
     Dates: start: 20211106, end: 20211106
  43. OXYCODONE [Concomitant]
     Active Substance: OXYCODONE
     Indication: Mucosal inflammation
     Route: 041
     Dates: start: 20210804, end: 20210811
  44. OXYCODONE [Concomitant]
     Active Substance: OXYCODONE
     Route: 041
     Dates: start: 20210803, end: 20210811
  45. COTRIMOXAZOLE [Concomitant]
     Active Substance: SULFAMETHOXAZOLE\TRIMETHOPRIM
     Indication: Prophylaxis
     Dates: start: 20210217, end: 20210602
  46. COTRIMOXAZOLE [Concomitant]
     Active Substance: SULFAMETHOXAZOLE\TRIMETHOPRIM
     Dates: start: 20210912
  47. CHOLESTYRAMINE [Concomitant]
     Active Substance: CHOLESTYRAMINE
     Indication: Diarrhoea
     Route: 041
     Dates: start: 20211011
  48. DAVITAMON COMPLETE GRAGEE [Concomitant]
     Indication: Product used for unknown indication
     Route: 041
     Dates: start: 20210802, end: 20210810
  49. FLUCONAZOLE [Concomitant]
     Active Substance: FLUCONAZOLE
     Indication: Prophylaxis
     Dates: start: 20210912
  50. FLUCONAZOLE [Concomitant]
     Active Substance: FLUCONAZOLE
     Dates: start: 20210723, end: 20210813
  51. FLUCONAZOLE [Concomitant]
     Active Substance: FLUCONAZOLE
     Dates: start: 20210209, end: 20210602
  52. PANTOPRAZOLE [Concomitant]
     Active Substance: PANTOPRAZOLE
     Indication: Prophylaxis
     Dates: start: 20210209, end: 20210621
  53. PANTOPRAZOLE [Concomitant]
     Active Substance: PANTOPRAZOLE
     Dates: start: 20210912
  54. ASPIRIN [Concomitant]
     Active Substance: ASPIRIN
     Indication: Prophylaxis
     Route: 065
     Dates: start: 20210209, end: 20210602
  55. HEPARIN [Concomitant]
     Active Substance: HEPARIN SODIUM
     Indication: Prophylaxis
     Route: 041
     Dates: start: 20210723, end: 20210812
  56. HEPARIN [Concomitant]
     Active Substance: HEPARIN SODIUM
     Indication: Pulmonary embolism
     Route: 041
     Dates: start: 20211205, end: 20211205
  57. MOVICOLON [Concomitant]
     Active Substance: POLYETHYLENE GLYCOL 3350\POTASSIUM CHLORIDE\SODIUM BICARBONATE\SODIUM CHLORIDE
     Indication: Prophylaxis
     Dates: start: 20210210, end: 20210602
  58. MOVICOLON [Concomitant]
     Active Substance: POLYETHYLENE GLYCOL 3350\POTASSIUM CHLORIDE\SODIUM BICARBONATE\SODIUM CHLORIDE
     Indication: Ileus
     Dates: start: 20211203, end: 20211205
  59. ACD-A ANTI THROMBOTIC PROPHYLAXIS [Concomitant]
     Indication: Prophylaxis
     Route: 041
     Dates: start: 20210614, end: 20210615
  60. CARBASPIRIN CALCIUM [Concomitant]
     Active Substance: CARBASPIRIN CALCIUM
     Indication: Prophylaxis
     Route: 041
     Dates: start: 20210912
  61. CARBASPIRIN CALCIUM [Concomitant]
     Active Substance: CARBASPIRIN CALCIUM
     Route: 041
     Dates: start: 20211205, end: 20211220
  62. METOCLOPRAMIDE [Concomitant]
     Active Substance: METOCLOPRAMIDE
     Indication: Prophylaxis
     Route: 041
     Dates: start: 20210811, end: 20210906
  63. METOCLOPRAMIDE [Concomitant]
     Active Substance: METOCLOPRAMIDE
     Route: 041
     Dates: start: 20210726, end: 20210811
  64. OLIMEL E [Concomitant]
     Active Substance: AMINO ACIDS\DEXTROSE\ELECTROLYTES NOS\SOYBEAN OIL
     Indication: Decreased appetite
     Route: 041
     Dates: start: 20210804, end: 20210810
  65. CHLORHEXIDINE [Concomitant]
     Active Substance: CHLORHEXIDINE
     Indication: Mucosal inflammation
     Route: 041
     Dates: start: 20210803, end: 20210813
  66. PENICILLIN G [Concomitant]
     Active Substance: PENICILLIN G
     Indication: Prophylaxis
     Route: 041
     Dates: start: 20210727, end: 20210811
  67. CALCIUM GLUCONATE [Concomitant]
     Active Substance: CALCIUM GLUCONATE
     Indication: Apheresis
     Dosage: 1 X 5000 MG
     Route: 041
     Dates: start: 20210614, end: 20210615
  68. ZOLEDRONIC ACID [Concomitant]
     Active Substance: ZOLEDRONIC ACID
     Indication: Prophylaxis
     Dates: start: 20210512
  69. QUETIAPINE [Concomitant]
     Active Substance: QUETIAPINE
     Indication: Delirium
     Dates: start: 20211214, end: 20211219
  70. HALOPERIDOL [Concomitant]
     Active Substance: HALOPERIDOL
     Indication: Delirium
     Dates: start: 20211213, end: 20211217
  71. HALOPERIDOL [Concomitant]
     Active Substance: HALOPERIDOL
     Dates: start: 20211217, end: 20211219
  72. OXAZEPAM [Concomitant]
     Active Substance: OXAZEPAM
     Indication: Delirium
     Dates: start: 20211216, end: 20211217
  73. VORICONAZOLE [Concomitant]
     Active Substance: VORICONAZOLE
     Indication: Aspergillus infection
  74. INSULIN ASPART [Concomitant]
     Active Substance: INSULIN ASPART
     Indication: Hyperglycaemia
     Dates: start: 20211208, end: 20211216
  75. DEXMEDETOMIDINE [Concomitant]
     Active Substance: DEXMEDETOMIDINE
     Indication: Delirium
     Dates: start: 20211217, end: 20211219

REACTIONS (1)
  - COVID-19 pneumonia [Fatal]

NARRATIVE: CASE EVENT DATE: 20211126
